FAERS Safety Report 5894764-8 (Version None)
Quarter: 2008Q3

REPORT INFORMATION
  Report Type: 
  Country: None (occurrence: None)
  Receive Date: 20080924
  Receipt Date: 20080429
  Transmission Date: 20090109
  Serious: No
  Sender: FDA-Public Use
  Company Number: US-ASTRAZENECA-2008UW08684

PATIENT
  Age: 15647 Day
  Sex: Female
  Weight: 143.6 kg

DRUGS (10)
  1. SEROQUEL [Suspect]
     Indication: BIPOLAR DISORDER
     Route: 048
     Dates: start: 20040321, end: 20070101
  2. ABILIFY (ARIPIPARAZOLE) [Concomitant]
     Dosage: 15MG, 30MG
     Dates: start: 20070101, end: 20070201
  3. GEODON [Concomitant]
     Dosage: 120MG, 180MG
     Dates: start: 20040312
  4. HALDOL SOLUTAB [Concomitant]
     Dates: start: 19920110
  5. RISPERDAL [Concomitant]
     Dosage: BEDTIME
     Dates: start: 20040201
  6. THORAZINE (CHLOPROMAZINE) [Concomitant]
     Dates: start: 19920101, end: 20040101
  7. PAMELOR [Concomitant]
     Dates: start: 19810101, end: 19900101
  8. PROLIXIN [Concomitant]
  9. TEGRETOL [Concomitant]
     Dosage: MORNING
  10. VALIUM [Concomitant]

REACTIONS (2)
  - DIABETES MELLITUS [None]
  - EMOTIONAL DISORDER [None]
